FAERS Safety Report 21915362 (Version 2)
Quarter: 2023Q1

REPORT INFORMATION
  Report Type: Spontaneous
  Country: US (occurrence: None)
  Receive Date: 20230126
  Receipt Date: 20230313
  Transmission Date: 20230417
  Serious: No
  Sender: FDA-Public Use
  Company Number: 2023A014339

PATIENT
  Sex: Female
  Weight: 81.6 kg

DRUGS (2)
  1. BUDESONIDE\FORMOTEROL\GLYCOPYRRONIUM [Suspect]
     Active Substance: BUDESONIDE\FORMOTEROL\GLYCOPYRRONIUM
     Indication: Asthma
     Dosage: 160 MCG, VIA INHALATION, 2 PUFFS 2 TIMES A DAY
     Route: 055
  2. BEVESPI AEROSPHERE [Suspect]
     Active Substance: FORMOTEROL FUMARATE\GLYCOPYRROLATE
     Indication: Asthma
     Dosage: UNKNOWN
     Route: 055

REACTIONS (7)
  - Dyspnoea [Unknown]
  - Off label use [Unknown]
  - Product dose omission issue [Unknown]
  - Incorrect dose administered by device [Unknown]
  - Device use issue [Unknown]
  - Wrong technique in product usage process [Unknown]
  - Device delivery system issue [Unknown]
